FAERS Safety Report 25160243 (Version 1)
Quarter: 2025Q2

REPORT INFORMATION
  Report Type: Spontaneous
  Country: PL (occurrence: PL)
  Receive Date: 20250404
  Receipt Date: 20250404
  Transmission Date: 20250717
  Serious: Yes (Hospitalization, Other)
  Sender: RANBAXY
  Company Number: PL-SUN PHARMACEUTICAL INDUSTRIES LTD-2025R1-502259

PATIENT
  Age: 33 Year
  Sex: Female

DRUGS (2)
  1. METOPROLOL [Suspect]
     Active Substance: METOPROLOL
     Indication: Hypertension
     Route: 065
  2. METHYLDOPA [Suspect]
     Active Substance: METHYLDOPA
     Indication: Hypertension
     Route: 065

REACTIONS (9)
  - Exposure during pregnancy [Unknown]
  - Premature delivery [Unknown]
  - Therapy non-responder [Unknown]
  - Tachycardia [Unknown]
  - Pre-eclampsia [Unknown]
  - Urinary tract infection [Unknown]
  - Pulmonary congestion [Unknown]
  - Cardiac failure [Recovering/Resolving]
  - Peripartum cardiomyopathy [Unknown]
